FAERS Safety Report 7121669-7 (Version None)
Quarter: 2010Q4

REPORT INFORMATION
  Report Type: 
  Country: None (occurrence: None)
  Receive Date: 20101124
  Receipt Date: 20101117
  Transmission Date: 20110411
  Serious: No
  Sender: FDA-Public Use
  Company Number: US-PFIZER INC-2010155547

PATIENT

DRUGS (2)
  1. VIRACEPT [Suspect]
     Dosage: 2500 MG, DAILY
     Route: 064
     Dates: start: 20090721, end: 20100630
  2. COMBIVIR [Suspect]
     Dosage: 2 DF, DAILY
     Route: 064
     Dates: start: 20090721, end: 20100630

REACTIONS (1)
  - DRUG EXPOSURE DURING PREGNANCY [None]
